FAERS Safety Report 13375472 (Version 1)
Quarter: 2017Q1

REPORT INFORMATION
  Report Type: Report from Study
  Country: US (occurrence: BR)
  Receive Date: 20170327
  Receipt Date: 20170327
  Transmission Date: 20170429
  Serious: Yes (Other)
  Sender: FDA-Public Use
  Company Number: US-SUNOVION-2017SUN001301

PATIENT
  Sex: Male
  Weight: 83 kg

DRUGS (2)
  1. AEROLIN [Suspect]
     Active Substance: ALBUTEROL
     Indication: PRODUCT USED FOR UNKNOWN INDICATION
     Dosage: UNK
     Route: 065
  2. INDACATEROL AND GLYCOPYRROLATE [Suspect]
     Active Substance: GLYCOPYRROLATE\INDACATEROL MALEATE
     Indication: EMPHYSEMA
     Dosage: UNK (110/50 UG)
     Route: 055

REACTIONS (8)
  - Pulmonary oedema [Unknown]
  - Fatigue [Unknown]
  - Hepatic cirrhosis [Unknown]
  - Dyspnoea [Unknown]
  - Cardiac failure [Unknown]
  - Embolism [Unknown]
  - Myocardial infarction [Unknown]
  - Confusional state [Unknown]
